FAERS Safety Report 9207917 (Version 1)
Quarter: 2013Q2

REPORT INFORMATION
  Report Type: Spontaneous
  Country: HR (occurrence: HR)
  Receive Date: 20130403
  Receipt Date: 20130403
  Transmission Date: 20140414
  Serious: Yes (Hospitalization, Other)
  Sender: FDA-Public Use
  Company Number: HR-TEVA-395008ISR

PATIENT
  Age: 26 Year
  Sex: Female

DRUGS (2)
  1. CARBAMAZEPINE [Suspect]
     Indication: EPILEPSY
     Dosage: 800 MILLIGRAM DAILY;
     Route: 065
  2. ETHINYLESTRADIOL AND GESTODENE [Interacting]
     Indication: ORAL CONTRACEPTION
     Dosage: ETHINYLESTRADIOL 20MCG /GESTODENE 75 MCG PILL
     Route: 048

REACTIONS (4)
  - Ectopic pregnancy [Recovered/Resolved]
  - Pregnancy on oral contraceptive [Recovered/Resolved]
  - Drug interaction [Recovered/Resolved]
  - Exposure during pregnancy [None]
